FAERS Safety Report 5396434-1 (Version None)
Quarter: 2007Q3

REPORT INFORMATION
  Report Type: 
  Country: None (occurrence: None)
  Receive Date: 20070725
  Receipt Date: 20070718
  Transmission Date: 20080115
  Serious: Yes (Death, Hospitalization)
  Sender: FDA-Public Use
  Company Number: US-AMGEN-US228976

PATIENT
  Sex: Male
  Weight: 145.7 kg

DRUGS (2)
  1. ARANESP [Suspect]
     Indication: RENAL FAILURE CHRONIC
     Route: 065
     Dates: start: 20060104
  2. RITUXAN [Concomitant]

REACTIONS (10)
  - CLOSTRIDIUM DIFFICILE COLITIS [None]
  - DEATH [None]
  - DIARRHOEA [None]
  - FATIGUE [None]
  - HYPOVOLAEMIC SHOCK [None]
  - RENAL FAILURE ACUTE [None]
  - RESPIRATORY FAILURE [None]
  - SEPSIS [None]
  - UPPER RESPIRATORY TRACT CONGESTION [None]
  - VOMITING [None]
